FAERS Safety Report 10230422 (Version 2)
Quarter: 2014Q2

REPORT INFORMATION
  Report Type: Report from Study
  Country: US (occurrence: US)
  Receive Date: 20140611
  Receipt Date: 20140611
  Transmission Date: 20141212
  Serious: Yes (Hospitalization, Other)
  Sender: FDA-Public Use
  Company Number: US-SA-LEUK-1000306

PATIENT
  Age: 76 Year
  Sex: Male
  Weight: 87.9 kg

DRUGS (17)
  1. SARGRAMOSTIM [Suspect]
     Indication: MALIGNANT MELANOMA
     Dosage: 250 MCG, QD ON DAYS 1-14 (CYCLE 1-4)
     Route: 058
     Dates: start: 20110516
  2. SARGRAMOSTIM [Suspect]
     Indication: MALIGNANT MELANOMA
     Dosage: 250 MCG, QD ON DAYS 1-14 (CYCLE 5+)
     Route: 058
     Dates: start: 20120905, end: 20120918
  3. IPILIMUMAB [Suspect]
     Indication: MALIGNANT MELANOMA
     Dosage: 10 MG/KG, OVER 90 MINS ON DAY 1
     Route: 042
     Dates: start: 20110516
  4. IPILIMUMAB [Suspect]
     Indication: MALIGNANT MELANOMA
     Dosage: 10 MG/KG, OVER 90 MINS ON DAY 1 Q 12 WEEKS
     Route: 042
  5. IPILIMUMAB [Suspect]
     Indication: MALIGNANT MELANOMA
     Dosage: 862 MG, ONCE; CYCLE 20
     Route: 042
     Dates: start: 20120702, end: 20120702
  6. TRAMADOL [Concomitant]
     Indication: BACK PAIN
     Dosage: 150 MG, QD
     Route: 048
  7. MELOXICAM [Concomitant]
     Indication: PRODUCT USED FOR UNKNOWN INDICATION
     Dosage: 7.5 MG, QD
     Route: 048
  8. ALLOPURINOL [Concomitant]
     Indication: PRODUCT USED FOR UNKNOWN INDICATION
     Dosage: 300 MG, QD
     Route: 048
  9. ALLOPURINOL [Concomitant]
     Indication: PRODUCT USED FOR UNKNOWN INDICATION
     Dosage: 100 MG, UNK
     Route: 048
  10. DIPHENHYDRAMINE [Concomitant]
     Indication: PRODUCT USED FOR UNKNOWN INDICATION
     Dosage: 1 TAB, UNK
     Route: 065
  11. FISH OIL [Concomitant]
     Indication: PRODUCT USED FOR UNKNOWN INDICATION
     Dosage: 2 TAB, UNK
     Route: 048
  12. IBUPROFEN [Concomitant]
     Indication: PRODUCT USED FOR UNKNOWN INDICATION
     Dosage: 2 TAB, UNK
     Route: 048
  13. INDOMETACIN [Concomitant]
     Indication: PRODUCT USED FOR UNKNOWN INDICATION
     Dosage: UNK
     Route: 065
  14. LOPERAMIDE [Concomitant]
     Indication: PRODUCT USED FOR UNKNOWN INDICATION
     Dosage: 1 TAB, UNK
     Route: 048
  15. GENERAL NUTRIENTS [Concomitant]
     Indication: PRODUCT USED FOR UNKNOWN INDICATION
     Dosage: 2 TAB, QD
     Route: 048
  16. ERGOCALCIFEROL [Concomitant]
     Indication: PRODUCT USED FOR UNKNOWN INDICATION
     Dosage: 2 DF, QD
     Route: 048
  17. PARACETAMOL [Concomitant]
     Indication: PRODUCT USED FOR UNKNOWN INDICATION
     Dosage: 160 MG/ML, UNK DOSE:160 MILLIGRAM(S)/MILLILITRE

REACTIONS (6)
  - Pulmonary fibrosis [Not Recovered/Not Resolved]
  - Hyponatraemia [Not Recovered/Not Resolved]
  - Activated partial thromboplastin time prolonged [Not Recovered/Not Resolved]
  - Thyroxine free decreased [Unknown]
  - Pulmonary hypertension [Not Recovered/Not Resolved]
  - Dyspnoea [Unknown]
